FAERS Safety Report 20425103 (Version 1)
Quarter: 2022Q1

REPORT INFORMATION
  Report Type: Spontaneous
  Country: SK (occurrence: SK)
  Receive Date: 20220204
  Receipt Date: 20220204
  Transmission Date: 20220423
  Serious: No
  Sender: FDA-Public Use
  Company Number: SK-EXELIXIS-CABO-21036723

PATIENT
  Age: 71 Year
  Sex: Male
  Weight: 85 kg

DRUGS (1)
  1. CABOMETYX [Suspect]
     Active Substance: CABOZANTINIB S-MALATE
     Indication: Renal cell carcinoma
     Dosage: 60 MG, QD
     Route: 048
     Dates: start: 20201216, end: 20210113

REACTIONS (10)
  - Liver function test increased [Unknown]
  - Dermatitis psoriasiform [Recovered/Resolved]
  - Iron binding capacity unsaturated decreased [Unknown]
  - Iron binding capacity total decreased [Unknown]
  - Aphonia [Recovered/Resolved]
  - Blood chloride increased [Unknown]
  - Red blood cell count decreased [Unknown]
  - Thrombocytopenia [Recovering/Resolving]
  - Blood calcium decreased [Unknown]
  - Blood magnesium decreased [Unknown]

NARRATIVE: CASE EVENT DATE: 20210112
